FAERS Safety Report 13194755 (Version 1)
Quarter: 2017Q1

REPORT INFORMATION
  Report Type: Spontaneous
  Country: TR (occurrence: TR)
  Receive Date: 20170207
  Receipt Date: 20170207
  Transmission Date: 20170428
  Serious: Yes (Death, Other)
  Sender: FDA-Public Use
  Company Number: PHHY2017TR014408

PATIENT
  Age: 94 Year
  Sex: Male

DRUGS (1)
  1. VANCOMYCIN [Suspect]
     Active Substance: VANCOMYCIN
     Indication: CAVERNOUS SINUS THROMBOSIS
     Dosage: 1000 MG/24 HRS
     Route: 065

REACTIONS (5)
  - Depressed level of consciousness [Unknown]
  - Hypoglycaemia [Unknown]
  - Epistaxis [Unknown]
  - Drug ineffective [Unknown]
  - Cardiac arrest [Fatal]
